FAERS Safety Report 5209637-3 (Version None)
Quarter: 2007Q1

REPORT INFORMATION
  Report Type: 
  Country: None (occurrence: None)
  Receive Date: 20070111
  Receipt Date: 20070104
  Transmission Date: 20070707
  Serious: Yes (Other)
  Sender: FDA-Public Use
  Company Number: 2007PV027813

PATIENT
  Age: 69 Year
  Sex: Female
  Weight: 117.9352 kg

DRUGS (6)
  1. BYETTA [Suspect]
     Indication: DIABETES MELLITUS NON-INSULIN-DEPENDENT
     Dosage: SEE IMAGE
     Route: 058
     Dates: start: 20061110, end: 20061101
  2. BYETTA [Suspect]
     Indication: DIABETES MELLITUS NON-INSULIN-DEPENDENT
     Dosage: SEE IMAGE
     Route: 058
     Dates: start: 20061001, end: 20061109
  3. GLIMIPERIDE [Concomitant]
  4. METFORMIN [Concomitant]
  5. DIOVAN [Concomitant]
  6. SIMVASTATIN [Concomitant]

REACTIONS (7)
  - DRUG INEFFECTIVE [None]
  - FALL [None]
  - LOSS OF CONSCIOUSNESS [None]
  - NASAL OEDEMA [None]
  - PERIORBITAL HAEMATOMA [None]
  - PHARMACEUTICAL PRODUCT COMPLAINT [None]
  - WEIGHT DECREASED [None]
